FAERS Safety Report 23887253 (Version 1)
Quarter: 2024Q2

REPORT INFORMATION
  Report Type: Spontaneous
  Country: US (occurrence: US)
  Receive Date: 20240523
  Receipt Date: 20240523
  Transmission Date: 20240715
  Serious: No
  Sender: FDA-Public Use
  Company Number: US-ELI_LILLY_AND_COMPANY-US202405012536

PATIENT
  Age: 47 Year
  Sex: Male

DRUGS (1)
  1. VERZENIO [Suspect]
     Active Substance: ABEMACICLIB
     Indication: Breast cancer male
     Dosage: 150 MG, BID (WITH OR WITHOUT FOOD)
     Route: 048
     Dates: start: 20240322

REACTIONS (1)
  - Diarrhoea [Recovering/Resolving]
